FAERS Safety Report 15484578 (Version 2)
Quarter: 2018Q4

REPORT INFORMATION
  Report Type: Report from Study
  Country: IT (occurrence: IT)
  Receive Date: 20181010
  Receipt Date: 20181030
  Transmission Date: 20190205
  Serious: Yes (Other)
  Sender: FDA-Public Use
  Company Number: IT-MYLANLABS-2018M1075384

PATIENT
  Age: 68 Year
  Sex: Male

DRUGS (2)
  1. NIMESULIDE [Suspect]
     Active Substance: NIMESULIDE
     Indication: PAIN
     Dosage: 100 MG, TOTAL
     Route: 048
     Dates: start: 20170115, end: 20170115
  2. LEVOFLOXACIN. [Suspect]
     Active Substance: LEVOFLOXACIN
     Indication: INFECTION
     Dosage: 500 MG, TOTAL
     Route: 048
     Dates: start: 20170115, end: 20170115

REACTIONS (3)
  - Oesophageal stenosis [Recovering/Resolving]
  - Throat tightness [Recovering/Resolving]
  - Face oedema [Recovering/Resolving]

NARRATIVE: CASE EVENT DATE: 20170115
